FAERS Safety Report 4757408-4 (Version None)
Quarter: 2005Q3

REPORT INFORMATION
  Report Type: 
  Country: None (occurrence: None)
  Receive Date: 20050829
  Receipt Date: 20050822
  Transmission Date: 20060218
  Serious: Yes (Hospitalization, Other)
  Sender: FDA-Public Use
  Company Number: 8011431

PATIENT
  Age: 34 Year
  Sex: Male
  Weight: 57 kg

DRUGS (7)
  1. KEPPRA [Suspect]
     Indication: CONVULSION
     Dosage: 500 MG 2/D PO
     Route: 048
     Dates: end: 20050712
  2. KEPPRA [Suspect]
     Indication: CONVULSION
     Dosage: 500 MG /D PO
     Route: 048
     Dates: start: 20050713
  3. LOMOTIL [Concomitant]
  4. PANCREASE [Concomitant]
  5. LIBRAX     /00033301/ [Concomitant]
  6. PREVACID [Concomitant]
  7. TUMS [Concomitant]

REACTIONS (2)
  - ANAEMIA [None]
  - IDIOPATHIC THROMBOCYTOPENIC PURPURA [None]
